FAERS Safety Report 21658571 (Version 1)
Quarter: 2022Q4

REPORT INFORMATION
  Report Type: Spontaneous
  Country: US (occurrence: None)
  Receive Date: 20221128
  Receipt Date: 20221128
  Transmission Date: 20230113
  Serious: Yes (Life-Threatening, Hospitalization, Disabling)
  Sender: FDA-Public Use
  Company Number: None

PATIENT
  Age: 53 Year
  Sex: Male
  Weight: 124.74 kg

DRUGS (13)
  1. INVEGA [Suspect]
     Active Substance: PALIPERIDONE
     Indication: Schizophrenia
     Dosage: FREQUENCY : DAILY;?
     Route: 048
     Dates: start: 20081020
  2. INVEGA [Suspect]
     Active Substance: PALIPERIDONE
     Indication: Phobia
  3. INVEGA [Suspect]
     Active Substance: PALIPERIDONE
     Indication: Bipolar disorder
  4. INVEGA [Suspect]
     Active Substance: PALIPERIDONE
     Indication: Anxiety
  5. ABILIFY [Suspect]
     Active Substance: ARIPIPRAZOLE
  6. DEPIKOTE [Concomitant]
  7. ASTORVASTATIN [Concomitant]
  8. CLONAZEPAM [Concomitant]
     Active Substance: CLONAZEPAM
  9. LEVOTHYROXINE [Concomitant]
     Active Substance: LEVOTHYROXINE
  10. VITA D2 [Concomitant]
  11. ACCETOPHETAMIN [Concomitant]
  12. FLUTCASONE PROPIONATE NASAL SPRAY [Concomitant]
  13. AZELASTINE HYDROCHLORIDE [Concomitant]
     Active Substance: AZELASTINE HYDROCHLORIDE

REACTIONS (3)
  - Legionella infection [None]
  - Meningitis fungal [None]
  - Pain [None]
